FAERS Safety Report 4916142-8 (Version None)
Quarter: 2006Q1

REPORT INFORMATION
  Report Type: 
  Country: None (occurrence: None)
  Receive Date: 20060217
  Receipt Date: 20050930
  Transmission Date: 20060701
  Serious: Yes (Hospitalization)
  Sender: FDA-Public Use
  Company Number: US-MERCK-0510USA01859

PATIENT
  Age: 76 Year
  Sex: Female
  Weight: 75 kg

DRUGS (5)
  1. VIOXX [Suspect]
     Indication: ARTHRITIS
     Route: 048
     Dates: start: 20011231, end: 20040912
  2. VIOXX [Suspect]
     Route: 048
     Dates: start: 20020620, end: 20020620
  3. NORVASC [Concomitant]
     Route: 065
  4. SYNTHROID [Concomitant]
     Route: 065
  5. VERAPAMIL [Concomitant]
     Route: 065

REACTIONS (11)
  - ACUTE CORONARY SYNDROME [None]
  - ARTHRITIS [None]
  - BRADYCARDIA [None]
  - CELLULITIS [None]
  - CHEST PAIN [None]
  - HYPERLIPIDAEMIA [None]
  - HYPERTENSION [None]
  - HYPOTHYROIDISM [None]
  - MYOCARDIAL INFARCTION [None]
  - OVERDOSE [None]
  - WOUND [None]
